FAERS Safety Report 15895203 (Version 1)
Quarter: 2019Q1

REPORT INFORMATION
  Report Type: Spontaneous
  Country: US (occurrence: US)
  Receive Date: 20190131
  Receipt Date: 20190131
  Transmission Date: 20190417
  Serious: Yes (Hospitalization, Other)
  Sender: FDA-Public Use
  Company Number: US-CIPLA LTD.-2019US00551

PATIENT

DRUGS (1)
  1. GEMFIBROZIL. [Suspect]
     Active Substance: GEMFIBROZIL
     Indication: FAMILIAL HYPERTRIGLYCERIDAEMIA
     Dosage: 600 MG, BID
     Route: 048

REACTIONS (4)
  - Treatment noncompliance [Unknown]
  - Exposure during pregnancy [Unknown]
  - Pancreatitis relapsing [Unknown]
  - Premature delivery [Unknown]
